FAERS Safety Report 19095964 (Version 2)
Quarter: 2021Q2

REPORT INFORMATION
  Report Type: Spontaneous
  Country: FR (occurrence: FR)
  Receive Date: 20210406
  Receipt Date: 20210409
  Transmission Date: 20210717
  Serious: Yes (Hospitalization)
  Sender: FDA-Public Use
  Company Number: FR-SA-2021SA107192

PATIENT
  Age: 83 Year
  Sex: Male
  Weight: 74 kg

DRUGS (5)
  1. FORTUM [CEFTAZIDIME PENTAHYDRATE] [Suspect]
     Active Substance: CEFTAZIDIME
     Dosage: UNK
     Route: 065
     Dates: start: 20210114, end: 20210115
  2. MECIR LP 0,4 MG [Suspect]
     Active Substance: TAMSULOSIN HYDROCHLORIDE
     Indication: PRODUCT USED FOR UNKNOWN INDICATION
     Dosage: 0.4 MG, QD
     Route: 048
     Dates: start: 20201119, end: 20210114
  3. DITROPAN [Suspect]
     Active Substance: OXYBUTYNIN CHLORIDE
     Indication: PRODUCT USED FOR UNKNOWN INDICATION
     Dosage: 5 MG, QD
     Route: 048
     Dates: start: 20201116, end: 20210114
  4. CIPROFLOXACIN. [Suspect]
     Active Substance: CIPROFLOXACIN
     Indication: POSTOPERATIVE WOUND INFECTION
     Dosage: UNK
     Route: 065
     Dates: start: 20201119, end: 20210110
  5. FORTUM [CEFTAZIDIME PENTAHYDRATE] [Suspect]
     Active Substance: CEFTAZIDIME
     Indication: POSTOPERATIVE WOUND INFECTION
     Dosage: 6 G, QD 6 G / 24 H; MEDICINAL NAME: FORTUM
     Route: 041
     Dates: start: 20201119, end: 20210110

REACTIONS (1)
  - Neutropenia [Recovered/Resolved]

NARRATIVE: CASE EVENT DATE: 20210110
